FAERS Safety Report 17156084 (Version 1)
Quarter: 2019Q4

REPORT INFORMATION
  Report Type: Spontaneous
  Country: IT (occurrence: IT)
  Receive Date: 20191216
  Receipt Date: 20191216
  Transmission Date: 20200122
  Serious: Yes (Hospitalization)
  Sender: FDA-Public Use
  Company Number: IT-ROCHE-2491295

PATIENT
  Age: 76 Year
  Sex: Female

DRUGS (11)
  1. VALPRESSION [Concomitant]
     Active Substance: VALSARTAN
  2. BACTRIM [Concomitant]
     Active Substance: SULFAMETHOXAZOLE\TRIMETHOPRIM
  3. PAROXETINE. [Concomitant]
     Active Substance: PAROXETINE
  4. BENDAMUSTINE HYDROCHLORIDE. [Suspect]
     Active Substance: BENDAMUSTINE HYDROCHLORIDE
     Indication: B-CELL LYMPHOMA
     Route: 042
     Dates: start: 20190228, end: 20190724
  5. SIMBATRIX [Concomitant]
  6. RITUXIMAB. [Suspect]
     Active Substance: RITUXIMAB
     Indication: B-CELL LYMPHOMA
     Route: 041
     Dates: start: 20190309, end: 20190923
  7. BISOPROLOL FUMARATE. [Concomitant]
     Active Substance: BISOPROLOL FUMARATE
  8. ZELITREX [Concomitant]
     Active Substance: VALACYCLOVIR HYDROCHLORIDE
  9. CARDIOASPIRIN [Concomitant]
     Active Substance: ASPIRIN
  10. VASEXTEN [Concomitant]
     Active Substance: BARNIDIPINE HYDROCHLORIDE
  11. INSULIN [Concomitant]
     Active Substance: INSULIN NOS

REACTIONS (4)
  - JC polyomavirus test positive [Unknown]
  - Confusional state [Unknown]
  - Bradyphrenia [Unknown]
  - Movement disorder [Unknown]

NARRATIVE: CASE EVENT DATE: 20190927
